FAERS Safety Report 7578921-0 (Version None)
Quarter: 2011Q2

REPORT INFORMATION
  Report Type: 
  Country: None (occurrence: None)
  Receive Date: 20110628
  Receipt Date: 20101117
  Transmission Date: 20111010
  Serious: No
  Sender: FDA-Public Use
  Company Number: PHHY2010US91332

PATIENT
  Sex: Male

DRUGS (2)
  1. TASIGNA [Suspect]
  2. OMEPRAZOLE [Interacting]

REACTIONS (1)
  - DRUG INTERACTION [None]
